FAERS Safety Report 7911765-6 (Version None)
Quarter: 2011Q4

REPORT INFORMATION
  Report Type: 
  Country: None (occurrence: None)
  Receive Date: 20111114
  Receipt Date: 20111114
  Transmission Date: 20120403
  Serious: Yes (Hospitalization, Other)
  Sender: FDA-Public Use
  Company Number: None

PATIENT
  Age: 6 Year
  Sex: Female
  Weight: 20.411 kg

DRUGS (1)
  1. COLCRYS [Suspect]
     Indication: FAMILIAL MEDITERRANEAN FEVER
     Dosage: 1.2MG
     Route: 048
     Dates: start: 20110201, end: 20111101

REACTIONS (5)
  - PYREXIA [None]
  - ABDOMINAL PAIN UPPER [None]
  - LETHARGY [None]
  - DECREASED APPETITE [None]
  - HEADACHE [None]
